FAERS Safety Report 4974834-9 (Version None)
Quarter: 2006Q1

REPORT INFORMATION
  Report Type: 
  Country: None (occurrence: None)
  Receive Date: 20060216
  Receipt Date: 20050330
  Transmission Date: 20060701
  Serious: Yes (Hospitalization)
  Sender: FDA-Public Use
  Company Number: 200503IM000118

PATIENT
  Age: 64 Year
  Sex: Male

DRUGS (3)
  1. ACTIMMUNE [Suspect]
     Indication: IDIOPATHIC PULMONARY FIBROSIS
     Dosage: 100 UG, TIW, SUBCUTANEOUS
     Route: 058
  2. PREDNISONE TAB [Concomitant]
  3. IMURAN [Concomitant]

REACTIONS (1)
  - PANCREATITIS [None]
